FAERS Safety Report 7420858-1 (Version None)
Quarter: 2011Q2

REPORT INFORMATION
  Report Type: 
  Country: None (occurrence: None)
  Receive Date: 20110418
  Receipt Date: 20110406
  Transmission Date: 20111010
  Serious: Yes (Hospitalization)
  Sender: FDA-Public Use
  Company Number: FR-ROCHE-770328

PATIENT
  Sex: Female

DRUGS (7)
  1. ZOPHREN [Concomitant]
     Route: 042
  2. CAPECITABINE [Suspect]
     Dosage: TEMPORARILY INTERRUPTED, LAST DATE PRIOR TO SAE: 24 MAR 2011
     Route: 065
     Dates: start: 20101229, end: 20110404
  3. ZANTAC [Concomitant]
  4. SOLU-MEDROL [Concomitant]
  5. BEVACIZUMAB [Suspect]
     Dosage: LAST DATE PRIOR TO SAE: 24 MAR 2011.
     Route: 065
     Dates: start: 20101229
  6. PACLITAXEL [Suspect]
     Dosage: DATE OF LAST DOSE PRIOR TO SAE: 24 MAR 2011.
     Route: 065
     Dates: start: 20101229
  7. POLARAMINE [Concomitant]

REACTIONS (4)
  - VOMITING [None]
  - HEADACHE [None]
  - INTRACRANIAL PRESSURE INCREASED [None]
  - DIZZINESS [None]
